FAERS Safety Report 14700425 (Version 1)
Quarter: 2018Q1

REPORT INFORMATION
  Report Type: Spontaneous
  Country: CN (occurrence: CN)
  Receive Date: 20180330
  Receipt Date: 20180330
  Transmission Date: 20180509
  Serious: Yes (Life-Threatening, Hospitalization)
  Sender: FDA-Public Use
  Company Number: CN-B.I. PHARMACEUTICALS,INC./RIDGEFIELD-2018-BI-017258

PATIENT
  Age: 58 Year
  Sex: Female
  Weight: 70 kg

DRUGS (2)
  1. ATROVENT [Suspect]
     Active Substance: IPRATROPIUM BROMIDE
     Indication: BRONCHOSPASM
     Dosage: DOSAGE FORM: ATOMIZING LIQUID
     Route: 055
     Dates: start: 20180123, end: 20180125
  2. BUDESONIDE. [Suspect]
     Active Substance: BUDESONIDE
     Indication: INFECTION
     Dosage: DOSAGE FORM: SUSPENSION FOR INHALATION, ATOMIZING LIQUID
     Route: 055
     Dates: start: 20180123, end: 20180125

REACTIONS (1)
  - Dyspnoea [Recovering/Resolving]

NARRATIVE: CASE EVENT DATE: 20180125
